FAERS Safety Report 25023763 (Version 1)
Quarter: 2025Q1

REPORT INFORMATION
  Report Type: Spontaneous
  Country: US (occurrence: US)
  Receive Date: 20250228
  Receipt Date: 20250228
  Transmission Date: 20250408
  Serious: No
  Sender: ROCHE
  Company Number: US-ROCHE-10000213017

PATIENT
  Sex: Male

DRUGS (2)
  1. XOLAIR [Suspect]
     Active Substance: OMALIZUMAB
     Indication: Asthma
     Dosage: STRENGTH: 75MG/0.5ML
     Route: 058
     Dates: start: 202208
  2. XOLAIR [Suspect]
     Active Substance: OMALIZUMAB
     Indication: Ill-defined disorder

REACTIONS (2)
  - Asthma [Unknown]
  - Nasopharyngitis [Unknown]
